FAERS Safety Report 18852729 (Version 1)
Quarter: 2021Q1

REPORT INFORMATION
  Report Type: Report from Study
  Country: US (occurrence: US)
  Receive Date: 20210205
  Receipt Date: 20210205
  Transmission Date: 20210420
  Serious: Yes (Hospitalization)
  Sender: FDA-Public Use
  Company Number: NVSC2021US020459

PATIENT
  Age: 10 Year
  Sex: Female

DRUGS (1)
  1. ILARIS [Suspect]
     Active Substance: CANAKINUMAB
     Indication: JUVENILE IDIOPATHIC ARTHRITIS
     Dosage: 10 MG, EVERY 4 WEEKS
     Route: 058
     Dates: start: 20201230

REACTIONS (2)
  - Systemic lupus erythematosus [Unknown]
  - Lupus nephritis [Unknown]

NARRATIVE: CASE EVENT DATE: 20210127
